FAERS Safety Report 20394213 (Version 1)
Quarter: 2022Q1

REPORT INFORMATION
  Report Type: Spontaneous
  Country: ES (occurrence: ES)
  Receive Date: 20220129
  Receipt Date: 20220129
  Transmission Date: 20220424
  Serious: Yes (Hospitalization)
  Sender: FDA-Public Use
  Company Number: None

PATIENT
  Age: 45 Year
  Sex: Female

DRUGS (3)
  1. MYFORTIC [Suspect]
     Active Substance: MYCOPHENOLATE SODIUM
     Indication: Solid organ transplant
     Dosage: 180 MG, Q8H (100 COMPRIMIDOS)
     Route: 048
     Dates: start: 2016
  2. PREDNISONE [Suspect]
     Active Substance: PREDNISONE
     Indication: Solid organ transplant
     Dosage: 5 MG, QD  (60 COMPRIMIDOS)
     Route: 048
     Dates: start: 2015
  3. TACROLIMUS [Suspect]
     Active Substance: TACROLIMUS
     Indication: Solid organ transplant
     Dosage: 5 MG, QD
     Route: 048
     Dates: start: 2015

REACTIONS (2)
  - Vaccination failure [Not Recovered/Not Resolved]
  - COVID-19 pneumonia [Not Recovered/Not Resolved]

NARRATIVE: CASE EVENT DATE: 20220107
